FAERS Safety Report 22006720 (Version 1)
Quarter: 2023Q1

REPORT INFORMATION
  Report Type: Spontaneous
  Country: US (occurrence: None)
  Receive Date: 20230216
  Receipt Date: 20230216
  Transmission Date: 20230418
  Serious: No
  Sender: FDA-Public Use
  Company Number: None

PATIENT
  Age: 75 Year
  Sex: Female
  Weight: 83.28 kg

DRUGS (19)
  1. IBRANCE [Suspect]
     Active Substance: PALBOCICLIB
     Indication: Breast cancer female
     Dosage: OTHER FREQUENCY : 21D OF 28D;?
     Route: 048
     Dates: start: 20230118
  2. ACETAMINOPHEN [Concomitant]
     Active Substance: ACETAMINOPHEN
  3. ALBUTEROL [Concomitant]
     Active Substance: ALBUTEROL
  4. AMLODIPINE [Concomitant]
     Active Substance: AMLODIPINE BESYLATE
  5. ASPIRIN [Concomitant]
     Active Substance: ASPIRIN
  6. ATORVASTATIN [Concomitant]
     Active Substance: ATORVASTATIN
  7. BENADRYL [Concomitant]
     Active Substance: DIPHENHYDRAMINE HYDROCHLORIDE
  8. CLOPIDOGREL [Concomitant]
     Active Substance: CLOPIDOGREL BISULFATE
  9. DEXAMETHASONE [Concomitant]
     Active Substance: DEXAMETHASONE
  10. FAMOTIDINE [Concomitant]
     Active Substance: FAMOTIDINE
  11. CALCIUM [Concomitant]
  12. ISOSORBIDE [Concomitant]
     Active Substance: ISOSORBIDE
  13. LETROZOLE [Concomitant]
     Active Substance: LETROZOLE
  14. LISINOPRIL [Concomitant]
     Active Substance: LISINOPRIL
  15. LORAZEPAM [Concomitant]
     Active Substance: LORAZEPAM
  16. METOPROLOL [Concomitant]
     Active Substance: METOPROLOL
  17. NITROGLYCERIN [Concomitant]
     Active Substance: NITROGLYCERIN
  18. PREDNISONE [Concomitant]
     Active Substance: PREDNISONE
  19. TAGAMET HB [Concomitant]
     Active Substance: CIMETIDINE

REACTIONS (1)
  - Full blood count decreased [None]
